FAERS Safety Report 6154473-7 (Version None)
Quarter: 2009Q2

REPORT INFORMATION
  Report Type: 
  Country: None (occurrence: None)
  Receive Date: 20090410
  Receipt Date: 20090410
  Transmission Date: 20091009
  Serious: Yes (Hospitalization)
  Sender: FDA-Public Use
  Company Number: None

PATIENT
  Age: 64 Year
  Sex: Male

DRUGS (1)
  1. PREDNISONE TAB [Suspect]
     Dosage: 10MG SLIDING SCALE PO
     Route: 048
     Dates: start: 20090106, end: 20090116

REACTIONS (1)
  - OEDEMA PERIPHERAL [None]
